FAERS Safety Report 19103841 (Version 3)
Quarter: 2021Q3

REPORT INFORMATION
  Report Type: Spontaneous
  Country: GB (occurrence: GB)
  Receive Date: 20210407
  Receipt Date: 20210929
  Transmission Date: 20211014
  Serious: Yes (Other)
  Sender: FDA-Public Use
  Company Number: GB-GALDERMA-GB2021007360

PATIENT

DRUGS (34)
  1. STELARA [Concomitant]
     Active Substance: USTEKINUMAB
     Dosage: 45 MILLIGRAM, UNK,FREQUENCY TIME: 12;UNIT: WEEKS
     Route: 058
     Dates: start: 20200626
  2. CARBOCISTEINE [Concomitant]
     Active Substance: CARBOCYSTEINE
     Indication: PRODUCT USED FOR UNKNOWN INDICATION
     Dosage: 168 CAPSULES,FREQUENCY TIME: 1;UNIT: DAYS
     Route: 065
     Dates: start: 20210202
  3. AVAMYS [Concomitant]
     Active Substance: FLUTICASONE FUROATE
     Indication: PRODUCT USED FOR UNKNOWN INDICATION
     Dosage: ,
     Route: 045
     Dates: start: 20210202
  4. MATRIFEN [Concomitant]
     Active Substance: FENTANYL
     Indication: PRODUCT USED FOR UNKNOWN INDICATION
     Dosage: 12 MICRONES,FREQUENCY TIME: 72;UNIT: HOURS
     Route: 062
     Dates: start: 20210202
  5. SALBUTAMOL [Concomitant]
     Active Substance: ALBUTEROL
     Indication: PRODUCT USED FOR UNKNOWN INDICATION
     Dosage: 200 DOSE,FREQUENCY TIME: 1;UNIT: DAYS
     Route: 065
     Dates: start: 20210202
  6. PREGABALIN. [Concomitant]
     Active Substance: PREGABALIN
     Indication: PRODUCT USED FOR UNKNOWN INDICATION
     Dosage: 56 CAPSULES,FREQUENCY TIME: 1;UNIT: DAYS
     Route: 065
     Dates: start: 20210125
  7. METRONIDAZOLE. [Suspect]
     Active Substance: METRONIDAZOLE
     Indication: PRODUCT USED FOR UNKNOWN INDICATION
     Dosage: UNK
     Route: 065
  8. OXYBUTYNIN. [Concomitant]
     Active Substance: OXYBUTYNIN CHLORIDE
     Indication: PRODUCT USED FOR UNKNOWN INDICATION
     Dosage: 56 TABLETS,
     Route: 065
     Dates: start: 20210202
  9. CALCIPOTRIOL [Concomitant]
     Active Substance: CALCIPOTRIENE
     Indication: PRODUCT USED FOR UNKNOWN INDICATION
     Dosage: 60 MILLILITER, UNK,FREQUENCY TIME: 1;UNIT: DAYS
     Route: 065
     Dates: start: 20210202
  10. CITALOPRAM [Concomitant]
     Active Substance: CITALOPRAM HYDROBROMIDE
     Indication: PRODUCT USED FOR UNKNOWN INDICATION
     Dosage: 20 MILLIGRAM, UNK,FREQUENCY TIME: 1;UNIT: DAYS
     Route: 065
     Dates: start: 20210202
  11. HYDROXYZINE [Concomitant]
     Active Substance: HYDROXYZINE HYDROCHLORIDE
     Indication: PRODUCT USED FOR UNKNOWN INDICATION
     Dosage: 25 MILLIGRAM, UNK,FREQUENCY TIME: 1;UNIT: DAYS
     Route: 065
     Dates: start: 20210202
  12. NAPROXEN. [Concomitant]
     Active Substance: NAPROXEN
     Indication: PRODUCT USED FOR UNKNOWN INDICATION
     Dosage: 56 TABLETS,FREQUENCY TIME: 1;UNIT: DAYS
     Route: 065
     Dates: start: 20210205
  13. TRELEGY ELLIPTA [Concomitant]
     Active Substance: FLUTICASONE FUROATE\UMECLIDINIUM BROMIDE\VILANTEROL TRIFENATATE
     Indication: PRODUCT USED FOR UNKNOWN INDICATION
     Dosage: 1 DOSAGE FORM, UNK,FREQUENCY TIME: 1;UNIT: DAYS
     Route: 065
     Dates: start: 20210202
  14. PREMANDOL [PREDNISOLONE ACETATE] [Concomitant]
     Indication: PRODUCT USED FOR UNKNOWN INDICATION
     Dosage: 42 TABLETS,FREQUENCY TIME: 1;UNIT: DAYS
     Route: 065
     Dates: start: 20210111
  15. CARBOCISTEINE [Concomitant]
     Active Substance: CARBOCYSTEINE
     Dosage: 1125 MILLIGRAM, 1 DAY
     Route: 065
  16. COLECALCIFEROL [Concomitant]
     Active Substance: CHOLECALCIFEROL
     Indication: PRODUCT USED FOR UNKNOWN INDICATION
     Dosage: 200 CAPSULES,FREQUENCY TIME: 1;UNIT: DAYS
     Route: 065
     Dates: start: 20201022
  17. PROCHLORPERAZINE. [Concomitant]
     Active Substance: PROCHLORPERAZINE
     Indication: DIZZINESS
     Dosage: 14 TABLETS,FREQUENCY TIME: 1;UNIT: DAYS
     Route: 065
  18. COLOFAC [Concomitant]
     Active Substance: MEBEVERINE HYDROCHLORIDE
     Indication: ABDOMINAL DISTENSION
     Dosage: 84 TABLETS,FREQUENCY TIME: 1;UNIT: DAYS
     Route: 065
     Dates: start: 20191220
  19. XAMIOL [Concomitant]
     Active Substance: BETAMETHASONE DIPROPIONATE\CALCIPOTRIENE HYDRATE
     Indication: PSORIASIS
     Dosage: 60 GRAM, UNK,FREQUENCY TIME: 1;UNIT: DAYS
     Route: 065
     Dates: start: 20210111
  20. HYPROMELLOSE [Concomitant]
     Active Substance: HYPROMELLOSES
     Indication: PRODUCT USED FOR UNKNOWN INDICATION
     Dosage: 40 MILLILITER, UNK,FREQUENCY TIME: 1;UNIT: DAYS
     Route: 065
     Dates: start: 20210202
  21. CHLORPHENIRAMINE. [Concomitant]
     Active Substance: CHLORPHENIRAMINE
     Indication: PRODUCT USED FOR UNKNOWN INDICATION
     Dosage: 56 TABLETS,FREQUENCY TIME: 1;UNIT: DAYS
     Route: 065
     Dates: start: 20210202
  22. STELARA [Concomitant]
     Active Substance: USTEKINUMAB
     Indication: PSORIASIS
     Dosage: SOLUTION FOR INJECTION IN PRE?FILLED SYRINGE,FREQUENCY TIME: 12;UNIT: WEEKS
     Route: 058
     Dates: start: 20171008
  23. EXOREX [Concomitant]
     Active Substance: COAL TAR
     Indication: PRURITUS
     Dosage: 100 MILLILITER, UNK,
     Route: 065
     Dates: start: 20210111
  24. AZITHROMYCIN ANHYDROUS. [Concomitant]
     Active Substance: AZITHROMYCIN ANHYDROUS
     Indication: PRODUCT USED FOR UNKNOWN INDICATION
     Dosage: 12 TABLETS,
     Route: 065
     Dates: start: 20210202
  25. FEXOFENADINE [Concomitant]
     Active Substance: FEXOFENADINE HYDROCHLORIDE
     Indication: PRODUCT USED FOR UNKNOWN INDICATION
     Dosage: 120 MILLIGRAM, UNK,FREQUENCY TIME: 1;UNIT: DAYS
     Route: 065
     Dates: start: 20210202
  26. PROMETHAZINE HYDROCHLORIDE. [Concomitant]
     Active Substance: PROMETHAZINE HYDROCHLORIDE
     Indication: PRODUCT USED FOR UNKNOWN INDICATION
     Dosage: 25 MILLIGRAM, UNK,
     Route: 065
     Dates: start: 20210202
  27. PARACETAMOL [Concomitant]
     Active Substance: ACETAMINOPHEN
     Indication: PRODUCT USED FOR UNKNOWN INDICATION
     Dosage: 100 TABLETS,FREQUENCY TIME: 1;UNIT: DAYS
     Route: 065
     Dates: start: 20210205
  28. OCTINOXATE. [Concomitant]
     Active Substance: OCTINOXATE
     Indication: PRODUCT USED FOR UNKNOWN INDICATION
     Dosage: 75 GRAM, QD, 1 DAY
     Route: 065
     Dates: start: 20210202
  29. TOPIRAMATE. [Concomitant]
     Active Substance: TOPIRAMATE
     Indication: PRODUCT USED FOR UNKNOWN INDICATION
     Dosage: 60 TABLETS,FREQUENCY TIME: 1;UNIT: DAYS
     Route: 065
     Dates: start: 20210202
  30. FERROUS FUMARATE [Concomitant]
     Active Substance: FERROUS FUMARATE
     Indication: PRODUCT USED FOR UNKNOWN INDICATION
     Dosage: 210 MILLIGRAM, UNK,FREQUENCY TIME: 1;UNIT: DAYS
     Route: 065
     Dates: start: 20210202
  31. OMEPRAZOLE. [Concomitant]
     Active Substance: OMEPRAZOLE
     Indication: PRODUCT USED FOR UNKNOWN INDICATION
     Dosage: 28 CAPSULES,FREQUENCY TIME: 1;UNIT: DAYS
     Route: 065
     Dates: start: 20210202
  32. HYDROMOL [Concomitant]
     Indication: PRODUCT USED FOR UNKNOWN INDICATION
     Dosage: 1500 GRAM, UNK,FREQUENCY TIME: 1;UNIT: DAYS
     Route: 065
  33. PREDNISOLONE. [Concomitant]
     Active Substance: PREDNISOLONE
     Indication: PRODUCT USED FOR UNKNOWN INDICATION
     Dosage: 30 MILLIGRAM, QD,1 DAY, 42 TABLETS
     Route: 065
     Dates: start: 20210111
  34. SUNSENSE AFTERSUN [Concomitant]
     Indication: PRODUCT USED FOR UNKNOWN INDICATION
     Dosage: 75 GRAM, UNK,FREQUENCY TIME: 1;UNIT: DAYS
     Route: 065
     Dates: start: 20210202

REACTIONS (17)
  - Uterine leiomyoma [Unknown]
  - Diverticulitis [Unknown]
  - Bursitis [Unknown]
  - Migraine [Unknown]
  - Polyp [Recovered/Resolved]
  - Anaphylactic reaction [Unknown]
  - Lower respiratory tract infection [Unknown]
  - Suspected COVID-19 [Unknown]
  - Hypersensitivity [Unknown]
  - Tinnitus [Unknown]
  - Diverticulum intestinal [Unknown]
  - Bronchiectasis [Unknown]
  - Hyperthyroidism [Unknown]
  - Presbyacusis [Unknown]
  - Rotator cuff syndrome [Unknown]
  - Psoriasis [Unknown]
  - Tendonitis [Unknown]

NARRATIVE: CASE EVENT DATE: 20171113
